FAERS Safety Report 5730167-4 (Version None)
Quarter: 2008Q2

REPORT INFORMATION
  Report Type: 
  Country: None (occurrence: None)
  Receive Date: 20080507
  Receipt Date: 20080430
  Transmission Date: 20081010
  Serious: Yes (Other)
  Sender: FDA-Public Use
  Company Number: US-AVENTIS-200812787US

PATIENT

DRUGS (1)
  1. LANTUS [Suspect]
     Dosage: DOSE: UNK

REACTIONS (1)
  - INJECTION SITE NECROSIS [None]
